FAERS Safety Report 6103136-2 (Version None)
Quarter: 2009Q1

REPORT INFORMATION
  Report Type: 
  Country: None (occurrence: None)
  Receive Date: 20090305
  Receipt Date: 20090220
  Transmission Date: 20090719
  Serious: Yes (Other)
  Sender: FDA-Public Use
  Company Number: ZA-PFIZER INC-2009176988

PATIENT

DRUGS (1)
  1. DOSTINEX [Suspect]
     Dosage: UNK
     Route: 048

REACTIONS (4)
  - AUTOIMMUNE DISORDER [None]
  - MALAISE [None]
  - RASH [None]
  - STRESS [None]
